FAERS Safety Report 14076645 (Version 1)
Quarter: 2017Q4

REPORT INFORMATION
  Report Type: Other
  Country: US (occurrence: US)
  Receive Date: 20171011
  Receipt Date: 20171011
  Transmission Date: 20180321
  Serious: Yes (Other)
  Sender: FDA-Public Use
  Company Number: US-THE PROACTIV LLC-2029694

PATIENT
  Age: 27 Year
  Sex: Female

DRUGS (3)
  1. PROACTIV PLUS RETEXTURIZING TONER [Suspect]
     Active Substance: SALICYLIC ACID
     Dates: start: 20170425
  2. PROACTIVPLUS SKIN SMOOTHING EXFOLIATOR [Suspect]
     Active Substance: BENZOYL PEROXIDE
     Indication: ACNE
     Route: 061
     Dates: start: 20170425
  3. PROACTIV PLUS CLARIFYING NIGHT [Suspect]
     Active Substance: SALICYLIC ACID
     Route: 061
     Dates: start: 20170425

REACTIONS (1)
  - Staphylococcal infection [Not Recovered/Not Resolved]

NARRATIVE: CASE EVENT DATE: 201707
